FAERS Safety Report 11584587 (Version 1)
Quarter: 2015Q4

REPORT INFORMATION
  Report Type: Other
  Country: CZ (occurrence: CZ)
  Receive Date: 20151001
  Receipt Date: 20151001
  Transmission Date: 20160304
  Serious: Yes (Hospitalization, Other)
  Sender: FDA-Public Use
  Company Number: CZ-APOTEX-2015AP012956

PATIENT
  Age: 27 Year
  Sex: Male
  Weight: 77 kg

DRUGS (3)
  1. ZODAC [Concomitant]
     Indication: HYPERSENSITIVITY
     Dosage: UNK
     Route: 065
  2. SERTRALINE [Suspect]
     Active Substance: SERTRALINE HYDROCHLORIDE
     Indication: EJACULATION DISORDER
     Dosage: UNK
     Route: 065
     Dates: end: 201506
  3. SERTRALINE [Suspect]
     Active Substance: SERTRALINE HYDROCHLORIDE
     Dosage: DOSE INCREASED
     Route: 065
     Dates: start: 201506, end: 20150624

REACTIONS (12)
  - Myalgia [Unknown]
  - Hot flush [Unknown]
  - Serotonin syndrome [Unknown]
  - Performance status decreased [Unknown]
  - Malaise [Unknown]
  - Circulatory collapse [Unknown]
  - Tremor [Unknown]
  - Hyperhidrosis [Unknown]
  - Headache [Unknown]
  - Loss of consciousness [Unknown]
  - Diarrhoea [Unknown]
  - Asthenia [Unknown]

NARRATIVE: CASE EVENT DATE: 20150624
